FAERS Safety Report 4500881-7 (Version None)
Quarter: 2004Q4

REPORT INFORMATION
  Report Type: 
  Country: None (occurrence: None)
  Receive Date: 20041109
  Receipt Date: 20041026
  Transmission Date: 20050328
  Serious: Yes (Hospitalization, Other)
  Sender: FDA-Public Use
  Company Number: USA-2003-0009316

PATIENT
  Age: 31 Year
  Sex: Male
  Weight: 94.3 kg

DRUGS (1)
  1. OXYCONTIN [Suspect]
     Dosage: SEE IMAGE
     Route: 048

REACTIONS (26)
  - ANXIETY [None]
  - APATHY [None]
  - ASPIRATION [None]
  - ASTHENIA [None]
  - CRYING [None]
  - DECREASED INTEREST [None]
  - DEPRESSED MOOD [None]
  - DIARRHOEA [None]
  - DISTURBANCE IN SOCIAL BEHAVIOUR [None]
  - DRUG ABUSER [None]
  - DRUG DEPENDENCE [None]
  - DRUG TOLERANCE [None]
  - DRUG WITHDRAWAL SYNDROME [None]
  - DYSPHORIA [None]
  - EMOTIONAL DISTRESS [None]
  - FEELING GUILTY [None]
  - FEELINGS OF WORTHLESSNESS [None]
  - IMPULSIVE BEHAVIOUR [None]
  - INSOMNIA [None]
  - INTENTIONAL OVERDOSE [None]
  - JUDGEMENT IMPAIRED [None]
  - MAJOR DEPRESSION [None]
  - PNEUMONIA [None]
  - PRESSURE OF SPEECH [None]
  - SOCIAL AVOIDANT BEHAVIOUR [None]
  - SUICIDAL IDEATION [None]
